FAERS Safety Report 4601213-6 (Version None)
Quarter: 2005Q1

REPORT INFORMATION
  Report Type: 
  Country: None (occurrence: None)
  Receive Date: 20050308
  Receipt Date: 20050223
  Transmission Date: 20050727
  Serious: Yes (Hospitalization)
  Sender: FDA-Public Use
  Company Number: US-JNJFOC-20050205790

PATIENT
  Age: 51 Year
  Sex: Male
  Weight: 136.08 kg

DRUGS (1)
  1. DURAGESIC-100 [Suspect]
     Indication: DRUG USE FOR UNKNOWN INDICATION
     Route: 062

REACTIONS (14)
  - CELLULITIS [None]
  - CHILLS [None]
  - CONFUSIONAL STATE [None]
  - DYSPNOEA [None]
  - GANGRENE [None]
  - HYPOTENSION [None]
  - LEG AMPUTATION [None]
  - NAUSEA [None]
  - OEDEMA PERIPHERAL [None]
  - PLEURAL EFFUSION [None]
  - SKIN ULCER [None]
  - SPUTUM PURULENT [None]
  - TACHYCARDIA [None]
  - VOMITING [None]
